FAERS Safety Report 19306834 (Version 1)
Quarter: 2021Q2

REPORT INFORMATION
  Report Type: Spontaneous
  Country: US (occurrence: US)
  Receive Date: 20210525
  Receipt Date: 20210525
  Transmission Date: 20210717
  Serious: No
  Sender: FDA-Public Use
  Company Number: None

PATIENT
  Age: 68 Year
  Sex: Female

DRUGS (1)
  1. OLUMIANT [Suspect]
     Active Substance: BARICITINIB
     Indication: RHEUMATOID ARTHRITIS
     Dosage: OTHER DOSE:1 TABLET ;?AS DIRECTED?
     Route: 048
     Dates: start: 202105

REACTIONS (3)
  - Neck pain [None]
  - Pain in jaw [None]
  - Chest pain [None]
